FAERS Safety Report 8092404-3 (Version None)
Quarter: 2012Q1

REPORT INFORMATION
  Report Type: 
  Country: None (occurrence: None)
  Receive Date: 20120128
  Receipt Date: 20110831
  Transmission Date: 20120608
  Serious: No
  Sender: FDA-Public Use
  Company Number: US-ABBOTT-11P-163-0850999-00

PATIENT
  Sex: Female

DRUGS (1)
  1. HUMIRA [Suspect]
     Indication: RHEUMATOID ARTHRITIS
     Dosage: UNDER THE SKIN
     Dates: start: 20110301

REACTIONS (7)
  - DYSURIA [None]
  - JAW DISORDER [None]
  - SPEECH DISORDER [None]
  - SWELLING [None]
  - ARTHRALGIA [None]
  - MICTURITION URGENCY [None]
  - INFLAMMATION [None]
